FAERS Safety Report 8852093 (Version 1)
Quarter: 2012Q4

REPORT INFORMATION
  Report Type: 
  Country: US (occurrence: US)
  Receive Date: 20121022
  Receipt Date: 20121022
  Transmission Date: 20130627
  Serious: No
  Sender: FDA-Public Use
  Company Number: US-BAUSCH-2012BL002214

PATIENT
  Age: 76 Year
  Sex: Female

DRUGS (1)
  1. NEOMYCIN AND POLYMYXIN B SULFATES AND HYDROCORTISONE [Suspect]
     Indication: EAR INFECTION
     Dosage: 4 drops in right ear; three times daily
     Route: 001
     Dates: start: 20120316

REACTIONS (1)
  - Ear pain [Recovering/Resolving]
